FAERS Safety Report 17929560 (Version 1)
Quarter: 2020Q2

REPORT INFORMATION
  Report Type: Spontaneous
  Country: BR (occurrence: BR)
  Receive Date: 20200623
  Receipt Date: 20200623
  Transmission Date: 20200714
  Serious: Yes (Other)
  Sender: FDA-Public Use
  Company Number: None

PATIENT
  Age: 31 Year
  Sex: Female
  Weight: 123.75 kg

DRUGS (3)
  1. CLONAZEPAM. [Concomitant]
     Active Substance: CLONAZEPAM
  2. SERTRALINE [Concomitant]
     Active Substance: SERTRALINE HYDROCHLORIDE
  3. LEVOTHYROXINE 88MG [Suspect]
     Active Substance: LEVOTHYROXINE
     Indication: HYPOTHYROIDISM
     Dosage: ?          QUANTITY:1 CAPSULE(S);?
     Route: 048
     Dates: start: 20190502, end: 20200623

REACTIONS (5)
  - Mobility decreased [None]
  - Alopecia [None]
  - Fatigue [None]
  - Self esteem decreased [None]
  - Weight increased [None]

NARRATIVE: CASE EVENT DATE: 20190101
